FAERS Safety Report 10762399 (Version 1)
Quarter: 2015Q1

REPORT INFORMATION
  Report Type: Spontaneous
  Country: NL (occurrence: NL)
  Receive Date: 20150204
  Receipt Date: 20150204
  Transmission Date: 20150721
  Serious: Yes (Other)
  Sender: FDA-Public Use
  Company Number: NL-TEVA-537936ISR

PATIENT
  Age: 56 Year
  Sex: Female

DRUGS (1)
  1. LITHIUM [Suspect]
     Active Substance: LITHIUM CARBONATE
     Indication: PSYCHOTIC DISORDER
     Dosage: 200 MILLIGRAM DAILY; INITIAL DOSAGE NOT STATED, AT THE TIME OF PRESENTATION 200 MG/DAY
     Route: 065

REACTIONS (1)
  - Chronic kidney disease [Unknown]
